FAERS Safety Report 5074750-0 (Version None)
Quarter: 2006Q3

REPORT INFORMATION
  Report Type: 
  Country: None (occurrence: None)
  Receive Date: 20060807
  Receipt Date: 20060720
  Transmission Date: 20061208
  Serious: Yes (Death)
  Sender: FDA-Public Use
  Company Number: GBR-2006-0002394

PATIENT
  Age: 79 Year
  Sex: Male
  Weight: 42 kg

DRUGS (2)
  1. OXYCONTIN [Suspect]
     Indication: DRUG USE FOR UNKNOWN INDICATION
     Dosage: 10 MG TID
     Dates: start: 20040518
  2. AUGMENTIN '125' [Concomitant]

REACTIONS (3)
  - CACHEXIA [None]
  - LETHARGY [None]
  - RESPIRATORY FAILURE [None]
